FAERS Safety Report 8954738 (Version 2)
Quarter: 2012Q4

REPORT INFORMATION
  Report Type: 
  Country: US (occurrence: US)
  Receive Date: 20121207
  Receipt Date: 20121220
  Transmission Date: 20130627
  Serious: Yes (Life-Threatening, Other)
  Sender: FDA-Public Use
  Company Number: US-ASTRAZENECA-2012SE91011

PATIENT
  Age: 56 Year
  Sex: Female
  Weight: 93 kg

DRUGS (8)
  1. SEROQUEL [Suspect]
     Indication: BIPOLAR DISORDER
     Route: 048
     Dates: start: 2002
  2. LISINOPRIL [Suspect]
     Indication: HYPERTENSION
     Route: 048
  3. ASPIRIN [Concomitant]
  4. LIPITOR [Concomitant]
     Indication: BLOOD CHOLESTEROL INCREASED
  5. LOVASTATIN [Concomitant]
     Indication: BLOOD CHOLESTEROL INCREASED
  6. MELOXICAM [Concomitant]
     Indication: CARPAL TUNNEL SYNDROME
  7. NORVASC [Concomitant]
     Indication: HYPERTENSION
  8. TRILEPTAL [Concomitant]
     Indication: BIPOLAR DISORDER

REACTIONS (3)
  - Suicide attempt [Unknown]
  - Mania [Unknown]
  - Drug dose omission [Unknown]
